FAERS Safety Report 6440472-4 (Version None)
Quarter: 2009Q4

REPORT INFORMATION
  Report Type: 
  Country: None (occurrence: None)
  Receive Date: 20091112
  Receipt Date: 20091112
  Transmission Date: 20100525
  Serious: Yes (Other)
  Sender: FDA-Public Use
  Company Number: None

PATIENT
  Age: 31 Year
  Sex: Female
  Weight: 112.4921 kg

DRUGS (2)
  1. PEGASYS [Suspect]
     Indication: HEPATITIS C
     Dosage: 180MCG WEEKLY SQ
     Route: 058
     Dates: start: 20090731, end: 20091111
  2. RIBAVIRIN [Suspect]
     Indication: HEPATITIS C
     Dosage: 200MG 3 PO QD PO
     Route: 048
     Dates: start: 20090731, end: 20091111

REACTIONS (1)
  - PREGNANCY TEST POSITIVE [None]
